FAERS Safety Report 9605640 (Version 1)
Quarter: 2013Q4

REPORT INFORMATION
  Report Type: Spontaneous
  Country: US (occurrence: US)
  Receive Date: 20131008
  Receipt Date: 20131008
  Transmission Date: 20140711
  Serious: Yes (Hospitalization, Other)
  Sender: FDA-Public Use
  Company Number: US-PFIZER INC-2013286623

PATIENT
  Age: 51 Year
  Sex: Male
  Weight: 109 kg

DRUGS (3)
  1. LYRICA [Suspect]
     Indication: DIABETIC NEUROPATHY
     Dosage: 200 MG, 3X/DAY
     Route: 048
  2. TRADJENTA [Concomitant]
     Dosage: UNK
  3. CYMBALTA [Concomitant]
     Dosage: UNK

REACTIONS (4)
  - Wound [Unknown]
  - Renal impairment [Unknown]
  - Musculoskeletal disorder [Unknown]
  - Renal function test abnormal [Unknown]
